FAERS Safety Report 23141345 (Version 2)
Quarter: 2024Q1

REPORT INFORMATION
  Report Type: Report from Study
  Country: CO (occurrence: CO)
  Receive Date: 20231103
  Receipt Date: 20240102
  Transmission Date: 20240410
  Serious: Yes (Hospitalization)
  Sender: FDA-Public Use
  Company Number: CO-TECNOFARMA-CO-1340-20220520

PATIENT
  Age: 5 Year
  Sex: Female

DRUGS (5)
  1. TRIPTODUR [Suspect]
     Active Substance: TRIPTORELIN
     Indication: Precocious puberty
     Dosage: STRENGTH: 3.75 MG X 1LIO X FCO LYOPHILIZED FOR SOLUTION (3.75 MG,1 M
     Route: 030
     Dates: start: 20190916, end: 20220425
  2. TRIPTODUR [Suspect]
     Active Substance: TRIPTORELIN
     Dosage: 11.25 MG,3 M
     Route: 030
     Dates: start: 20220525
  3. TRIPTODUR [Suspect]
     Active Substance: TRIPTORELIN
     Dosage: (22.5 MG,6 M)
     Route: 030
     Dates: start: 202210
  4. TRIPTODUR [Suspect]
     Active Substance: TRIPTORELIN
  5. TRIPTODUR [Suspect]
     Active Substance: TRIPTORELIN

REACTIONS (4)
  - Urinary tract infection [Recovered/Resolved]
  - COVID-19 screening [Recovered/Resolved]
  - Therapy change [Not Recovered/Not Resolved]
  - Insurance issue [Not Recovered/Not Resolved]

NARRATIVE: CASE EVENT DATE: 20220516
